FAERS Safety Report 5528000-9 (Version None)
Quarter: 2007Q4

REPORT INFORMATION
  Report Type: 
  Country: None (occurrence: None)
  Receive Date: 20071128
  Receipt Date: 20071112
  Transmission Date: 20080405
  Serious: Yes (Hospitalization)
  Sender: FDA-Public Use
  Company Number: DE-ASTRAZENECA-2007PK02402

PATIENT
  Age: 58 Year
  Sex: Male

DRUGS (16)
  1. NEXIUM [Interacting]
     Route: 048
     Dates: start: 20061029, end: 20061107
  2. METOHEXAL [Suspect]
     Route: 048
     Dates: start: 20061029, end: 20061101
  3. METOHEXAL [Suspect]
     Route: 048
     Dates: start: 20061102, end: 20061108
  4. ERGENYL [Suspect]
     Route: 048
     Dates: start: 20061029, end: 20061031
  5. ERGENYL [Suspect]
     Route: 048
     Dates: start: 20061101, end: 20061105
  6. ERGENYL [Suspect]
     Route: 048
     Dates: start: 20061107
  7. DIAZEPAM [Interacting]
     Route: 048
     Dates: start: 20061030, end: 20061101
  8. DIAZEPAM [Interacting]
     Route: 048
     Dates: start: 20061102, end: 20061106
  9. DIAZEPAM [Interacting]
     Route: 048
     Dates: start: 20061107
  10. ZYPREXA [Suspect]
     Route: 048
     Dates: start: 20061030, end: 20061030
  11. ZYPREXA [Suspect]
     Route: 048
     Dates: start: 20061031, end: 20061102
  12. ZYPREXA [Suspect]
     Route: 048
     Dates: start: 20061103, end: 20061106
  13. ZYPREXA [Suspect]
     Route: 048
     Dates: start: 20061107
  14. CORVATON [Concomitant]
     Route: 048
     Dates: start: 20061029, end: 20061108
  15. RAMIPRIL [Concomitant]
     Route: 048
     Dates: start: 20061029, end: 20061108
  16. SIMVAHEXAL [Concomitant]
     Route: 048
     Dates: start: 20061029, end: 20061108

REACTIONS (2)
  - ALTERED STATE OF CONSCIOUSNESS [None]
  - DRUG INTERACTION [None]
